FAERS Safety Report 6429515-1 (Version None)
Quarter: 2009Q4

REPORT INFORMATION
  Report Type: 
  Country: None (occurrence: None)
  Receive Date: 20091102
  Receipt Date: 20091026
  Transmission Date: 20100525
  Serious: Yes (Hospitalization, Other)
  Sender: FDA-Public Use
  Company Number: 2009100059

PATIENT
  Age: 46 Year
  Sex: Female
  Weight: 104.3273 kg

DRUGS (11)
  1. SOMA [Suspect]
     Indication: PAIN
     Dosage: (350 MG,ONCE),ORAL ; (350 MG,ONCE),ORAL
     Route: 048
     Dates: start: 20091013, end: 20091013
  2. SOMA [Suspect]
     Indication: PAIN
     Dosage: (350 MG,ONCE),ORAL ; (350 MG,ONCE),ORAL
     Route: 048
     Dates: start: 20091015, end: 20091015
  3. VOLTAREN [Suspect]
     Indication: OSTEOARTHRITIS
     Dosage: (2 GM),TOPICAL
     Route: 061
     Dates: start: 20091013, end: 20091015
  4. METHADONE (METHADONE) [Suspect]
     Indication: PAIN
     Dosage: QD (80 MG,1 IN 1 D),ORAL
     Route: 048
     Dates: start: 20080301, end: 20091001
  5. VITAMINS [Concomitant]
  6. ROXICODONE (OXYCODONE HC1) [Concomitant]
  7. CYMBALTA (DULOXETINE HC1) [Concomitant]
  8. WELLBUTRIN (BUPROPION HC1) [Concomitant]
  9. PROTONIX [Concomitant]
  10. SINEQUAN (DOXEPIN HC1) [Concomitant]
  11. XANAX [Concomitant]

REACTIONS (15)
  - BLOOD CALCIUM DECREASED [None]
  - BLOOD GLUCOSE DECREASED [None]
  - BLOOD MAGNESIUM DECREASED [None]
  - BLOOD POTASSIUM DECREASED [None]
  - DISCOMFORT [None]
  - ELECTROCARDIOGRAM ABNORMAL [None]
  - FACIAL PAIN [None]
  - FATIGUE [None]
  - JOINT SWELLING [None]
  - MUSCULOSKELETAL PAIN [None]
  - NECK PAIN [None]
  - OEDEMA PERIPHERAL [None]
  - PAIN [None]
  - PARAESTHESIA [None]
  - WRONG TECHNIQUE IN DRUG USAGE PROCESS [None]
